FAERS Safety Report 18066706 (Version 2)
Quarter: 2020Q3

REPORT INFORMATION
  Report Type: Spontaneous
  Country: LB (occurrence: LB)
  Receive Date: 20200724
  Receipt Date: 20200811
  Transmission Date: 20201103
  Serious: Yes (Hospitalization, Other)
  Sender: FDA-Public Use
  Company Number: LB-DENTSPLY-2020SCDP000238

PATIENT
  Age: 25 Year
  Sex: Male

DRUGS (1)
  1. LIDOCAINE HYDROCHLORIDE AND EPINEPHRINE BITARTRATE [Suspect]
     Active Substance: EPINEPHRINE BITARTRATE\LIDOCAINE HYDROCHLORIDE
     Indication: LOCAL ANAESTHESIA
     Dosage: 2 MILLILITER, TOTAL, DONE WITH A 25?GAUGE NEEDLE IN ONLY 1 POINT, MORE THAN 1 CM DISTANT FROM THE RE
     Route: 023
     Dates: start: 202002, end: 202002

REACTIONS (2)
  - Facial paralysis [Recovered/Resolved]
  - Nerve injury [Recovered/Resolved]

NARRATIVE: CASE EVENT DATE: 202002
